FAERS Safety Report 5682154-2 (Version None)
Quarter: 2008Q1

REPORT INFORMATION
  Report Type: 
  Country: None (occurrence: None)
  Receive Date: 20080325
  Receipt Date: 20080313
  Transmission Date: 20080703
  Serious: Yes (Death, Disabling)
  Sender: FDA-Public Use
  Company Number: 2008BI005186

PATIENT
  Age: 25 Year

DRUGS (1)
  1. AVONEX [Suspect]
     Indication: MULTIPLE SCLEROSIS
     Dosage: 39 UG; QW; IM
     Route: 030
     Dates: start: 20070501

REACTIONS (4)
  - ASPHYXIA [None]
  - BLINDNESS [None]
  - COMPLETED SUICIDE [None]
  - MULTIPLE SCLEROSIS RELAPSE [None]
